FAERS Safety Report 18914500 (Version 1)
Quarter: 2021Q1

REPORT INFORMATION
  Report Type: Spontaneous
  Country: IL (occurrence: IL)
  Receive Date: 20210218
  Receipt Date: 20210218
  Transmission Date: 20210420
  Serious: Yes (Death, Hospitalization, Other)
  Sender: FDA-Public Use
  Company Number: IL-JAZZ-2020-IL-017505

PATIENT
  Age: 65 Year
  Sex: Female

DRUGS (1)
  1. ZEPZELCA [Suspect]
     Active Substance: LURBINECTEDIN
     Indication: LUNG NEOPLASM MALIGNANT
     Dosage: 5.7 MILLIGRAM CYCLE 1
     Route: 065
     Dates: start: 20200813, end: 20200813

REACTIONS (3)
  - Urosepsis [Fatal]
  - Neutropenia [Unknown]
  - Thrombocytopenia [Unknown]
